FAERS Safety Report 7107630-7 (Version None)
Quarter: 2010Q4

REPORT INFORMATION
  Report Type: 
  Country: None (occurrence: None)
  Receive Date: 20101117
  Receipt Date: 20101111
  Transmission Date: 20110411
  Serious: Yes (Other)
  Sender: FDA-Public Use
  Company Number: US-TEVA-255083USA

PATIENT
  Sex: Female

DRUGS (2)
  1. COPAXONE [Suspect]
     Indication: MULTIPLE SCLEROSIS
     Route: 058
     Dates: start: 20080101, end: 20100301
  2. INTERFERON BETA-1A [Suspect]
     Indication: MULTIPLE SCLEROSIS

REACTIONS (3)
  - CONVULSION [None]
  - HOT FLUSH [None]
  - MEMORY IMPAIRMENT [None]
